FAERS Safety Report 4914242-X (Version None)
Quarter: 2006Q1

REPORT INFORMATION
  Report Type: 
  Country: None (occurrence: None)
  Receive Date: 20060210
  Receipt Date: 20060126
  Transmission Date: 20060701
  Serious: Yes (Hospitalization)
  Sender: FDA-Public Use
  Company Number: 2006P1000072

PATIENT
  Age: 51 Year
  Sex: Male

DRUGS (10)
  1. RETEPLASE (RETEPLASE) [Suspect]
     Indication: ACUTE MYOCARDIAL INFARCTION
     Dosage: 5.0 IU; 1X; IV; SEE IMAGE
     Route: 042
     Dates: start: 20041217
  2. RETEPLASE (RETEPLASE) [Suspect]
     Indication: ACUTE MYOCARDIAL INFARCTION
     Dosage: 5.0 IU; 1X; IV; SEE IMAGE
     Route: 042
     Dates: start: 20041217
  3. ABCIXIMAB (ABCIXIMAB) [Suspect]
     Indication: ACUTE MYOCARDIAL INFARCTION
     Dosage: 10.6 ML; 1X; IV; SEE IMAGE
     Route: 042
     Dates: start: 20041217, end: 20041217
  4. ABCIXIMAB (ABCIXIMAB) [Suspect]
     Indication: ACUTE MYOCARDIAL INFARCTION
     Dosage: 10.6 ML; 1X; IV; SEE IMAGE
     Route: 042
     Dates: start: 20041217, end: 20041217
  5. ACE INHIBITOR NOS [Concomitant]
  6. HEPARIN [Concomitant]
  7. ASPIRIN [Concomitant]
  8. BETA BLOCKING AGENTS [Concomitant]
  9. CHOLESTEROL- AND TRIGLYCERIDE REDUCERS [Concomitant]
  10. DIURETICS [Concomitant]

REACTIONS (2)
  - CORONARY ARTERY STENOSIS [None]
  - TROPONIN INCREASED [None]
